FAERS Safety Report 21346972 (Version 1)
Quarter: 2022Q3

REPORT INFORMATION
  Report Type: Spontaneous
  Country: US (occurrence: None)
  Receive Date: 20220916
  Receipt Date: 20220916
  Transmission Date: 20221026
  Serious: Yes (Other)
  Sender: FDA-Public Use
  Company Number: None

PATIENT
  Sex: Female

DRUGS (7)
  1. PROMACTA [Suspect]
     Active Substance: ELTROMBOPAG OLAMINE
     Indication: Immune thrombocytopenia
     Dosage: 25 MG ORAL??TAKE 1 TABLET BY MOUTH ONCE DAILY
     Route: 048
     Dates: start: 20210817
  2. EZETIMIBE TAB [Concomitant]
  3. NIFEDIPINE TAB [Concomitant]
  4. PRAVASTATIN [Concomitant]
     Active Substance: PRAVASTATIN
  5. VITAMIN B-12 TAB [Concomitant]
  6. VITAMIN C TAB [Concomitant]
  7. VITAMIN D CAP [Concomitant]

REACTIONS (1)
  - Aortic aneurysm [None]
